FAERS Safety Report 13010868 (Version 1)
Quarter: 2016Q4

REPORT INFORMATION
  Report Type: Spontaneous
  Country: HU (occurrence: HU)
  Receive Date: 20161208
  Receipt Date: 20161208
  Transmission Date: 20170207
  Serious: Yes (Other)
  Sender: FDA-Public Use
  Company Number: HU-MYLANLABS-2016M1053761

PATIENT
  Sex: Female

DRUGS (7)
  1. OXALIPLATIN. [Suspect]
     Active Substance: OXALIPLATIN
     Indication: OVARIAN CANCER STAGE IV
     Dosage: 11 CYCLES
     Route: 065
  2. IFOSFAMIDE. [Suspect]
     Active Substance: IFOSFAMIDE
     Indication: OVARIAN CANCER STAGE IV
     Dosage: 6 CYCLES
     Route: 065
     Dates: start: 201201
  3. ETOPOSIDE. [Suspect]
     Active Substance: ETOPOSIDE
     Indication: OVARIAN CANCER STAGE IV
     Dosage: 6 CYCLES
     Route: 065
     Dates: start: 201201
  4. FLUOROURACIL. [Suspect]
     Active Substance: FLUOROURACIL
     Indication: OVARIAN CANCER STAGE IV
     Dosage: 11 CYCLES
     Route: 065
  5. BEVACIZUMAB [Suspect]
     Active Substance: BEVACIZUMAB
     Indication: OVARIAN CANCER STAGE IV
     Dosage: 4 CYCLES
     Route: 065
  6. CISPLATIN. [Suspect]
     Active Substance: CISPLATIN
     Indication: OVARIAN CANCER STAGE IV
     Dosage: 6 CYCLES
     Route: 065
     Dates: start: 201201
  7. FOLINIC ACID [Suspect]
     Active Substance: LEUCOVORIN
     Indication: OVARIAN CANCER STAGE IV
     Dosage: 11 CYCLES
     Route: 065

REACTIONS (10)
  - Malaise [Unknown]
  - Diarrhoea [Unknown]
  - Asthenia [Unknown]
  - Neutropenia [Unknown]
  - Nausea [Unknown]
  - Fatigue [Unknown]
  - Neuropathy peripheral [Unknown]
  - Abdominal pain [Unknown]
  - Thrombocytopenic purpura [Unknown]
  - White blood cell count decreased [Unknown]
